FAERS Safety Report 7597742-6 (Version None)
Quarter: 2011Q3

REPORT INFORMATION
  Report Type: 
  Country: None (occurrence: None)
  Receive Date: 20110708
  Receipt Date: 20110630
  Transmission Date: 20111222
  Serious: Yes (Life-Threatening, Other)
  Sender: FDA-Public Use
  Company Number: IE-GLAXOSMITHKLINE-B0728016A

PATIENT
  Sex: Female

DRUGS (9)
  1. AGOMELATINE [Suspect]
     Indication: DEPRESSION
     Route: 048
     Dates: end: 20110608
  2. LAMOTRIGINE [Suspect]
     Indication: DEPRESSION
     Route: 048
     Dates: start: 20110524, end: 20110608
  3. MEMANTINE HCL [Concomitant]
     Indication: DEMENTIA
     Dosage: 20MCG PER DAY
     Dates: start: 20100906
  4. CLARITHROMYCIN [Suspect]
     Indication: PRODUCT USED FOR UNKNOWN INDICATION
     Route: 065
     Dates: start: 20110526, end: 20110603
  5. AUGMENTIN '125' [Suspect]
     Indication: PRODUCT USED FOR UNKNOWN INDICATION
     Route: 065
     Dates: start: 20110607
  6. PLAVIX [Concomitant]
     Dosage: 75MCG PER DAY
  7. MACROBID [Suspect]
     Indication: PRODUCT USED FOR UNKNOWN INDICATION
     Route: 065
     Dates: start: 20110526, end: 20110603
  8. MADOPAR [Concomitant]
     Dosage: 187.5MCG PER DAY
     Dates: start: 20100211
  9. MIRTAZAPINE [Concomitant]
     Indication: DEPRESSION
     Dosage: 30MCG PER DAY
     Dates: start: 20080929, end: 20110613

REACTIONS (9)
  - URINARY TRACT INFECTION [None]
  - HEPATITIS [None]
  - ALANINE AMINOTRANSFERASE INCREASED [None]
  - BLOOD ALKALINE PHOSPHATASE INCREASED [None]
  - JAUNDICE [None]
  - CHROMATURIA [None]
  - GAMMA-GLUTAMYLTRANSFERASE INCREASED [None]
  - BLOOD BILIRUBIN INCREASED [None]
  - BODY TEMPERATURE INCREASED [None]
